FAERS Safety Report 11647599 (Version 2)
Quarter: 2015Q4

REPORT INFORMATION
  Report Type: Spontaneous
  Country: GB (occurrence: GB)
  Receive Date: 20151021
  Receipt Date: 20151109
  Transmission Date: 20160304
  Serious: Yes (Hospitalization)
  Sender: FDA-Public Use
  Company Number: GB-AUROBINDO-AUR-APL-2015-09291

PATIENT
  Age: 82 Year
  Sex: Male

DRUGS (3)
  1. FLECAINIDE 100 MG [Suspect]
     Active Substance: FLECAINIDE
     Indication: ATRIAL FIBRILLATION
     Dosage: 100 MG, TWO TIMES A DAY
     Route: 065
  2. WARFARIN [Concomitant]
     Active Substance: WARFARIN
     Indication: ATRIAL FIBRILLATION
     Route: 065
  3. RAMIPRIL. [Concomitant]
     Active Substance: RAMIPRIL
     Indication: HYPERTENSION
     Dosage: 5 MG, DAILY
     Route: 065

REACTIONS (13)
  - Acute kidney injury [Recovered/Resolved]
  - Electrocardiogram QRS complex prolonged [Recovered/Resolved]
  - Blood creatinine increased [Recovered/Resolved]
  - Cardiotoxicity [Recovered/Resolved]
  - Ventricular tachycardia [Recovered/Resolved]
  - Ventricular asystole [Recovered/Resolved]
  - Oversensing [Recovered/Resolved]
  - Tachycardia [Recovered/Resolved]
  - Device lead issue [Recovered/Resolved]
  - Toxicity to various agents [Recovered/Resolved]
  - Atrial flutter [Recovered/Resolved]
  - Drug level above therapeutic [Recovered/Resolved]
  - Cardiogenic shock [Recovered/Resolved]
